FAERS Safety Report 5195840-8 (Version None)
Quarter: 2007Q1

REPORT INFORMATION
  Report Type: 
  Country: None (occurrence: None)
  Receive Date: 20070102
  Receipt Date: 20061227
  Transmission Date: 20070707
  Serious: Yes (Disabling)
  Sender: FDA-Public Use
  Company Number: 2006UW28664

PATIENT
  Age: 45 Year
  Sex: Male

DRUGS (1)
  1. NEXIUM [Suspect]
     Indication: GASTROOESOPHAGEAL REFLUX DISEASE
     Route: 048

REACTIONS (3)
  - BONE DISORDER [None]
  - DRUG INEFFECTIVE [None]
  - TEMPOROMANDIBULAR JOINT SYNDROME [None]
